FAERS Safety Report 4290883-0 (Version None)
Quarter: 2004Q1

REPORT INFORMATION
  Report Type: 
  Country: None (occurrence: None)
  Receive Date: 20040209
  Receipt Date: 20040123
  Transmission Date: 20041129
  Serious: Yes (Hospitalization)
  Sender: FDA-Public Use
  Company Number: 8005067

PATIENT
  Age: 25 Year
  Sex: Female
  Weight: 50 kg

DRUGS (4)
  1. KEPPRA [Suspect]
     Indication: EPILEPSY
     Dosage: 1 G 2/D PO
     Route: 048
     Dates: start: 20031201, end: 20040121
  2. KEPPRA [Suspect]
     Indication: EPILEPSY
     Dosage: 1.5 G PO
     Route: 048
     Dates: start: 20040122, end: 20040122
  3. KEPPRA [Suspect]
     Indication: EPILEPSY
     Dosage: 1 G PO
     Route: 048
     Dates: start: 20040123, end: 20040101
  4. TEGRETOL [Concomitant]

REACTIONS (5)
  - AGRANULOCYTOSIS [None]
  - ARTHRALGIA [None]
  - HAEMOGLOBIN DECREASED [None]
  - HEPATIC ENZYME INCREASED [None]
  - SYSTEMIC LUPUS ERYTHEMATOSUS [None]
